FAERS Safety Report 9943601 (Version 2)
Quarter: 2014Q1

REPORT INFORMATION
  Report Type: Report from Study
  Country: US (occurrence: US)
  Receive Date: 20140303
  Receipt Date: 20140303
  Transmission Date: 20141002
  Serious: Yes (Hospitalization)
  Sender: FDA-Public Use
  Company Number: US-ABBVIE-13P-163-1047641-00

PATIENT
  Age: 49 Year
  Sex: Male

DRUGS (5)
  1. HUMIRA [Suspect]
     Indication: COLITIS ULCERATIVE
     Dates: start: 20130102
  2. CELEXA [Concomitant]
     Indication: DEPRESSION
  3. FOLIC ACID [Concomitant]
     Indication: COLITIS ULCERATIVE
  4. SULFASALAZINE [Concomitant]
     Indication: COLITIS ULCERATIVE
  5. NORCO [Concomitant]
     Indication: PAIN

REACTIONS (1)
  - Colitis ulcerative [Recovering/Resolving]
